FAERS Safety Report 7605144-9 (Version None)
Quarter: 2011Q3

REPORT INFORMATION
  Report Type: 
  Country: None (occurrence: None)
  Receive Date: 20110713
  Receipt Date: 20110527
  Transmission Date: 20111222
  Serious: Yes (Hospitalization, Other)
  Sender: FDA-Public Use
  Company Number: US-BAYER-2010-006238

PATIENT
  Sex: Female
  Weight: 70.295 kg

DRUGS (3)
  1. LISINOPRIL [Concomitant]
  2. ADVIL LIQUI-GELS [Concomitant]
     Indication: HEADACHE
  3. YASMIN [Suspect]
     Indication: ACNE
     Dosage: UNK
     Route: 048
     Dates: start: 19980101, end: 20030101

REACTIONS (8)
  - OVARIAN NEOPLASM [None]
  - GALLBLADDER DISORDER [None]
  - HEPATOMEGALY [None]
  - HEPATIC NEOPLASM MALIGNANT [None]
  - OVARIAN MASS [None]
  - GALLBLADDER NON-FUNCTIONING [None]
  - PAIN [None]
  - HEPATIC NEOPLASM [None]
